FAERS Safety Report 9100998 (Version 1)
Quarter: 2013Q1

REPORT INFORMATION
  Report Type: Spontaneous
  Country: US (occurrence: US)
  Receive Date: 20130214
  Receipt Date: 20130214
  Transmission Date: 20140127
  Serious: Yes (Other)
  Sender: FDA-Public Use
  Company Number: US-PFIZER INC-2013057371

PATIENT
  Age: 75 Year
  Sex: Female
  Weight: 131.52 kg

DRUGS (4)
  1. TOVIAZ [Suspect]
     Indication: HYPERTONIC BLADDER
     Dosage: 4 MG, 1X/DAY
     Route: 048
     Dates: start: 201302
  2. FUROSEMIDE [Concomitant]
     Dosage: 80 MG, 1X/DAY
  3. PANTOPRAZOLE [Concomitant]
     Dosage: 40 MG, 1X/DAY
  4. CITALOPRAM [Concomitant]
     Dosage: 40 MG, 1X/DAY

REACTIONS (3)
  - Blood glucose increased [Unknown]
  - Dry mouth [Unknown]
  - Constipation [Unknown]
